FAERS Safety Report 9132256 (Version 3)
Quarter: 2013Q3

REPORT INFORMATION
  Report Type: Report from Study
  Country: JP (occurrence: JP)
  Receive Date: 20130301
  Receipt Date: 20130919
  Transmission Date: 20140515
  Serious: Yes (Other)
  Sender: FDA-Public Use
  Company Number: JP-PFIZER INC-2013037273

PATIENT
  Age: 28 Year
  Sex: Male
  Weight: 52.1 kg

DRUGS (2)
  1. EFFEXOR XR [Suspect]
     Indication: DEPRESSION
     Dosage: 37.5 MG, DAILY
     Route: 048
     Dates: start: 20120507, end: 201205
  2. EFFEXOR XR [Suspect]
     Dosage: 225 MG, DAILY
     Route: 048
     Dates: start: 20120528, end: 20120723

REACTIONS (2)
  - Theft [Unknown]
  - Sexual abuse [Unknown]
